FAERS Safety Report 16902408 (Version 1)
Quarter: 2019Q4

REPORT INFORMATION
  Report Type: Spontaneous
  Country: JP (occurrence: JP)
  Receive Date: 20191010
  Receipt Date: 20191010
  Transmission Date: 20200122
  Serious: Yes (Hospitalization)
  Sender: FDA-Public Use
  Company Number: JP-TEVA-2019-JP-1116055

PATIENT
  Age: 68 Year
  Sex: Male

DRUGS (6)
  1. PRAMIPEXOLE HYDROCHLORIDE MONOHYDRATE [Concomitant]
     Active Substance: PRAMIPEXOLE
  2. NOURIAST [Concomitant]
     Active Substance: ISTRADEFYLLINE
  3. AZILECT [Suspect]
     Active Substance: RASAGILINE MESYLATE
     Indication: PARKINSON^S DISEASE
     Dosage: 1 MILLIGRAM DAILY;
     Route: 048
     Dates: start: 20190912
  4. LANSOPRAZOLE. [Concomitant]
     Active Substance: LANSOPRAZOLE
  5. DOPACOL [Concomitant]
     Active Substance: CARBIDOPA\LEVODOPA
  6. BAYASPIRIN [Concomitant]
     Active Substance: ASPIRIN

REACTIONS (2)
  - Fracture [Recovering/Resolving]
  - Fall [Recovering/Resolving]

NARRATIVE: CASE EVENT DATE: 20190912
